FAERS Safety Report 14974839 (Version 2)
Quarter: 2018Q2

REPORT INFORMATION
  Report Type: Spontaneous
  Country: IL (occurrence: IL)
  Receive Date: 20180605
  Receipt Date: 20180606
  Transmission Date: 20180711
  Serious: Yes (Other)
  Sender: FDA-Public Use
  Company Number: IL-PFIZER INC-2018221985

PATIENT
  Age: 15 Year
  Sex: Male

DRUGS (1)
  1. GENOTROPIN [Suspect]
     Active Substance: SOMATROPIN
     Dosage: UNK
     Route: 058
     Dates: start: 20180528

REACTIONS (5)
  - Dizziness [Unknown]
  - Syncope [Recovered/Resolved]
  - Dyskinesia [Unknown]
  - Choking sensation [Unknown]
  - Vomiting [Unknown]

NARRATIVE: CASE EVENT DATE: 2018
